FAERS Safety Report 10273991 (Version 1)
Quarter: 2014Q2

REPORT INFORMATION
  Report Type: Spontaneous
  Country: US (occurrence: None)
  Receive Date: 20140630
  Receipt Date: 20140630
  Transmission Date: 20141212
  Serious: Yes (Death, Hospitalization)
  Sender: FDA-Public Use
  Company Number: None

PATIENT
  Age: 80 Year
  Sex: Male
  Weight: 80.45 kg

DRUGS (6)
  1. CYCLOPHOSPHAMIDE [Suspect]
  2. DOXORUBICINE HYDROCHLORIDE [Suspect]
  3. PS-341 (BORTEZOMIB; VELCADE) [Suspect]
  4. PREDNISONE [Suspect]
  5. RITUXIMAB (MOAB C2B8 ANTI CD20, CHIMERIC) [Suspect]
  6. VINCRISTINE SULFATE [Suspect]

REACTIONS (9)
  - Chest pain [None]
  - Dyspnoea [None]
  - Atrial fibrillation [None]
  - Pneumonia [None]
  - Neutropenia [None]
  - Atrioventricular block complete [None]
  - Cardiac arrest [None]
  - Atrial fibrillation [None]
  - Sick sinus syndrome [None]
